FAERS Safety Report 25407378 (Version 1)
Quarter: 2025Q2

REPORT INFORMATION
  Report Type: Spontaneous
  Country: US (occurrence: None)
  Receive Date: 20250605
  Receipt Date: 20250605
  Transmission Date: 20250717
  Serious: No
  Sender: FDA-CTU
  Company Number: None

PATIENT
  Age: 38 Year
  Sex: Female
  Weight: 58.5 kg

DRUGS (6)
  1. FLONASE SENSIMIST ALLERGY RELIEF [Suspect]
     Active Substance: FLUTICASONE FUROATE
     Indication: Nasal congestion
     Dosage: OTHER QUANTITY : 1 SPRAY(S);?FREQUENCY : AT BEDTIME;?OTHER ROUTE : NASAL SPRAY;?
     Route: 050
     Dates: start: 20250601
  2. FLONASE SENSIMIST ALLERGY RELIEF [Suspect]
     Active Substance: FLUTICASONE FUROATE
     Indication: Multiple allergies
  3. MONTELUKAST [Concomitant]
     Active Substance: MONTELUKAST
  4. oral birth control [Concomitant]
  5. CLARITIN [Concomitant]
     Active Substance: LORATADINE
  6. VITAMIN D [Concomitant]
     Active Substance: VITAMIN D NOS

REACTIONS (4)
  - Insomnia [None]
  - Anxiety [None]
  - Palpitations [None]
  - Physical product label issue [None]

NARRATIVE: CASE EVENT DATE: 20250605
